FAERS Safety Report 23821522 (Version 1)
Quarter: 2024Q2

REPORT INFORMATION
  Report Type: Report from Study
  Country: US (occurrence: US)
  Receive Date: 20240506
  Receipt Date: 20240506
  Transmission Date: 20240716
  Serious: Yes (Hospitalization)
  Sender: FDA-Public Use
  Company Number: US-TAKEDA-2024TUS008286

PATIENT
  Sex: Female
  Weight: 52.61 kg

DRUGS (2)
  1. MARIBAVIR [Suspect]
     Active Substance: MARIBAVIR
     Indication: Cytomegalovirus infection
     Dosage: 400 MILLIGRAM, BID
     Route: 048
     Dates: start: 20231222
  2. MARIBAVIR [Suspect]
     Active Substance: MARIBAVIR
     Dosage: 4 DOSAGE FORM, QD
     Route: 048

REACTIONS (5)
  - Respiratory tract infection viral [Unknown]
  - Arthralgia [Unknown]
  - Tendon pain [Unknown]
  - Taste disorder [Unknown]
  - Ageusia [Unknown]
